FAERS Safety Report 4830683-3 (Version None)
Quarter: 2005Q4

REPORT INFORMATION
  Report Type: 
  Country: None (occurrence: None)
  Receive Date: 20051114
  Receipt Date: 20051107
  Transmission Date: 20060501
  Serious: Yes (Death)
  Sender: FDA-Public Use
  Company Number: HQ0648511FEB2002

PATIENT
  Age: 58 Year
  Sex: Male

DRUGS (1)
  1. SIROLIMUS (SIROLIMUS, TABLET) [Suspect]
     Indication: PROPHYLAXIS AGAINST TRANSPLANT REJECTION
     Dosage: 1 MG, 1X PER 1 DAY, ORAL
     Route: 048
     Dates: start: 20010323, end: 20020115

REACTIONS (2)
  - CARDIOPULMONARY FAILURE [None]
  - SEPSIS [None]
